FAERS Safety Report 24336163 (Version 1)
Quarter: 2024Q3

REPORT INFORMATION
  Report Type: Report from Study
  Country: ID (occurrence: ID)
  Receive Date: 20240919
  Receipt Date: 20240919
  Transmission Date: 20241017
  Serious: No
  Sender: ROCHE
  Company Number: ID-ROCHE-3427352

PATIENT
  Age: 30 Year
  Sex: Male

DRUGS (11)
  1. OSELTAMIVIR [Suspect]
     Active Substance: OSELTAMIVIR
     Indication: COVID-19
     Route: 065
  2. LANSOPRAZOLE [Concomitant]
     Active Substance: LANSOPRAZOLE
  3. ZINC [Concomitant]
     Active Substance: ZINC
  4. AZITROMISIN [Concomitant]
  5. VITAMIN C [Concomitant]
     Active Substance: ASCORBIC ACID
  6. POVIDONE-IODINE [Concomitant]
     Active Substance: POVIDONE-IODINE
  7. DOMPERIDONE [Concomitant]
     Active Substance: DOMPERIDONE
  8. DEXAMETHASONE [Concomitant]
     Active Substance: DEXAMETHASONE
  9. DIFENHIDRAMIN [Concomitant]
  10. ALPRAZOLAM [Concomitant]
     Active Substance: ALPRAZOLAM
  11. ROSUVASTATIN [Concomitant]
     Active Substance: ROSUVASTATIN\ROSUVASTATIN CALCIUM

REACTIONS (3)
  - Off label use [Unknown]
  - Constipation [Unknown]
  - Insomnia [Unknown]
